FAERS Safety Report 9009685 (Version 2)
Quarter: 2013Q1

REPORT INFORMATION
  Report Type: Spontaneous
  Country: IE (occurrence: IE)
  Receive Date: 20130112
  Receipt Date: 20130204
  Transmission Date: 20140127
  Serious: Yes (Other)
  Sender: FDA-Public Use
  Company Number: IE-AMGEN-IRLSP2012074867

PATIENT
  Sex: Female

DRUGS (10)
  1. PROLIA [Suspect]
     Indication: OSTEOPOROSIS POSTMENOPAUSAL
     Dosage: 60 MG, UNK
     Route: 058
     Dates: start: 20120514, end: 201211
  2. NU-SEALS ASPIRIN [Concomitant]
     Dosage: 75 MG, QD
  3. AMLODIPINE [Concomitant]
     Dosage: 5 MG, UNK
     Route: 048
  4. PREDNISOLONE [Concomitant]
     Dosage: 5 MG, UNK
     Route: 048
  5. ATORVASTATIN [Concomitant]
     Dosage: 40 MG, QHS
     Route: 048
  6. CITALOPRAM [Concomitant]
     Dosage: 20 MG, QD
     Route: 048
  7. FUROSEMIDE [Concomitant]
     Dosage: 40 MG, QD
     Route: 048
  8. WARFARIN [Concomitant]
     Route: 048
  9. BISOPROLOL [Concomitant]
     Dosage: 7.5 MG, UNK
     Route: 048
  10. STILNOCT [Concomitant]
     Dosage: 10 MG, AS NECESSARY
     Route: 048

REACTIONS (1)
  - Systemic lupus erythematosus rash [Recovered/Resolved]
